FAERS Safety Report 5646468-4 (Version None)
Quarter: 2008Q1

REPORT INFORMATION
  Report Type: 
  Country: None (occurrence: None)
  Receive Date: 20080227
  Receipt Date: 20080211
  Transmission Date: 20080703
  Serious: Yes (Hospitalization, Other)
  Sender: FDA-Public Use
  Company Number: JPI-P-003005

PATIENT
  Age: 40 Year
  Sex: Male

DRUGS (6)
  1. LUVOX [Suspect]
     Indication: DRUG USE FOR UNKNOWN INDICATION
     Dosage: (100 MG, D), ORAL; (10 MG, D), ORAL
     Route: 048
     Dates: start: 20070722, end: 20071005
  2. LUVOX [Suspect]
     Indication: DRUG USE FOR UNKNOWN INDICATION
     Dosage: (100 MG, D), ORAL; (10 MG, D), ORAL
     Route: 048
     Dates: start: 20071006, end: 20071201
  3. OLANZAPINE [Suspect]
     Indication: DRUG USE FOR UNKNOWN INDICATION
     Dosage: (10 MG, D), ORAL
     Route: 048
     Dates: start: 20070722, end: 20071201
  4. LEVOTHYROXINE SODIUM [Concomitant]
  5. DIHYDROERGOTAMINE MESYLATE [Concomitant]
  6. PRAZEPAM [Concomitant]

REACTIONS (3)
  - AGGRESSION [None]
  - CYTOLYTIC HEPATITIS [None]
  - HEPATITIS B [None]
